FAERS Safety Report 8470911-9 (Version None)
Quarter: 2012Q2

REPORT INFORMATION
  Report Type: 
  Country: None (occurrence: None)
  Receive Date: 20120627
  Receipt Date: 20120622
  Transmission Date: 20120825
  Serious: Yes (Death, Other)
  Sender: FDA-Public Use
  Company Number: JP-JNJFOC-20120406454

PATIENT
  Age: 82 Year
  Sex: Male

DRUGS (8)
  1. CLARITHROMYCIN [Suspect]
     Indication: DIFFUSE PANBRONCHIOLITIS
     Route: 048
     Dates: start: 20110819, end: 20120331
  2. ASPIRIN [Concomitant]
     Indication: ATRIAL FIBRILLATION
     Route: 048
     Dates: start: 19990416, end: 20120331
  3. GALANTAMINE HYDROBROMIDE [Suspect]
     Route: 048
     Dates: start: 20110628, end: 20110813
  4. SWORD [Concomitant]
     Indication: BRONCHITIS
     Route: 048
     Dates: start: 20120330, end: 20120331
  5. DIGOXIN [Suspect]
     Indication: ATRIAL FIBRILLATION
     Route: 048
     Dates: start: 19990416, end: 20120331
  6. GALANTAMINE HYDROBROMIDE [Suspect]
     Indication: DEMENTIA ALZHEIMER'S TYPE
     Route: 048
     Dates: start: 20110814, end: 20120331
  7. COUGHNOL [Concomitant]
     Indication: DIFFUSE PANBRONCHIOLITIS
     Route: 048
     Dates: start: 20081201, end: 20120331
  8. TAMIFLU [Concomitant]
     Indication: INFLUENZA
     Route: 048
     Dates: start: 20120330, end: 20120331

REACTIONS (4)
  - CARDIAC FAILURE [None]
  - BRONCHITIS [None]
  - PNEUMONIA [None]
  - DEHYDRATION [None]
